FAERS Safety Report 24922227 (Version 2)
Quarter: 2025Q1

REPORT INFORMATION
  Report Type: Report from Study
  Country: US (occurrence: US)
  Receive Date: 20250204
  Receipt Date: 20250214
  Transmission Date: 20250409
  Serious: Yes (Other)
  Sender: ROCHE
  Company Number: US-ROCHE-10000185043

PATIENT
  Age: 71 Year
  Sex: Male

DRUGS (4)
  1. GAZYVA [Suspect]
     Active Substance: OBINUTUZUMAB
     Indication: Neoplasm malignant
     Route: 042
     Dates: start: 202402
  2. GAZYVA [Suspect]
     Active Substance: OBINUTUZUMAB
     Indication: Mantle cell lymphoma
  3. VENCLEXTA [Suspect]
     Active Substance: VENETOCLAX
     Indication: Mantle cell lymphoma
     Dosage: TAKE 4 TABLET(S) BY MOUTH (400MG) DAILY
     Route: 048
     Dates: start: 20241217
  4. VENCLEXTA [Suspect]
     Active Substance: VENETOCLAX
     Indication: Neoplasm malignant
     Dosage: TAKE 8 TABLET(S) BY MOUTH (400MG) EVERY DAY AS DIRECTED
     Route: 048
     Dates: start: 20241217

REACTIONS (15)
  - Headache [Recovering/Resolving]
  - Tremor [Recovering/Resolving]
  - Peripheral coldness [Recovering/Resolving]
  - Dizziness [Recovering/Resolving]
  - Off label use [Unknown]
  - Off label use [Unknown]
  - Product physical issue [Unknown]
  - Product colour issue [Unknown]
  - Neoplasm malignant [Unknown]
  - Chills [Unknown]
  - Product prescribing error [Unknown]
  - Pain [Unknown]
  - Product dispensing error [Unknown]
  - Pyrexia [Unknown]
  - Nausea [Unknown]

NARRATIVE: CASE EVENT DATE: 20250115
